FAERS Safety Report 24941776 (Version 1)
Quarter: 2025Q1

REPORT INFORMATION
  Report Type: Spontaneous
  Country: US (occurrence: None)
  Receive Date: 20250207
  Receipt Date: 20250207
  Transmission Date: 20250408
  Serious: Yes (Hospitalization)
  Sender: FDA-CTU
  Company Number: None

PATIENT
  Age: 19 Month
  Sex: Female
  Weight: 12.76 kg

DRUGS (2)
  1. CYCLOPHOSPHAMIDE [Suspect]
     Active Substance: CYCLOPHOSPHAMIDE
     Dates: end: 20250128
  2. TOPOTECAN [Suspect]
     Active Substance: TOPOTECAN HYDROCHLORIDE
     Dates: end: 20250128

REACTIONS (7)
  - Pseudomonas infection [None]
  - Urinary tract infection [None]
  - Hypotension [None]
  - Tachycardia [None]
  - Abdominal distension [None]
  - Blood lactic acid increased [None]
  - Sepsis [None]

NARRATIVE: CASE EVENT DATE: 20250131
